FAERS Safety Report 9661215 (Version 1)
Quarter: 2013Q4

REPORT INFORMATION
  Report Type: Spontaneous
  Country: US (occurrence: None)
  Receive Date: 20131030
  Receipt Date: 20131030
  Transmission Date: 20140711
  Serious: Yes (Life-Threatening, Other)
  Sender: FDA-Public Use
  Company Number: 1713747-2013-99967

PATIENT
  Age: 55 Year
  Sex: Male

DRUGS (4)
  1. DELFLEX [Suspect]
     Indication: DIALYSIS
     Dosage: PD CATHETER
     Dates: start: 20130922
  2. CALCITRLOL [Concomitant]
  3. SEVELAMER CARBONATE (RENVELA) [Concomitant]
  4. CHEMOTHERAPY [Concomitant]

REACTIONS (1)
  - Peritonitis [None]
